FAERS Safety Report 8938316 (Version 2)
Quarter: 2012Q4

REPORT INFORMATION
  Report Type: 
  Country: JP (occurrence: JP)
  Receive Date: 20121130
  Receipt Date: 20121210
  Transmission Date: 20130627
  Serious: Yes (Hospitalization)
  Sender: FDA-Public Use
  Company Number: JP-BAXTER-2012BAX025056

PATIENT
  Sex: Male

DRUGS (1)
  1. DIANEAL-N PD-2 1.5 PD SOLUTION [Suspect]
     Indication: DIABETIC NEPHROPATHY
     Route: 033
     Dates: start: 20111111

REACTIONS (1)
  - Cerebral haemorrhage [Recovered/Resolved]
